FAERS Safety Report 12890593 (Version 1)
Quarter: 2016Q4

REPORT INFORMATION
  Report Type: Spontaneous
  Country: US (occurrence: US)
  Receive Date: 20161027
  Receipt Date: 20161027
  Transmission Date: 20170207
  Serious: No
  Sender: FDA-Public Use
  Company Number: US-JAZZ-2016-US-015694

PATIENT
  Sex: Female

DRUGS (10)
  1. PROBIOTIC [Concomitant]
     Active Substance: PROBIOTICS NOS
  2. MIRENA [Concomitant]
     Active Substance: LEVONORGESTREL
  3. XYREM [Suspect]
     Active Substance: SODIUM OXYBATE
     Indication: NARCOLEPSY
     Dosage: 2.25 G, BID
     Route: 048
     Dates: start: 201607, end: 201608
  4. MULTIVITAMINS [Concomitant]
     Active Substance: VITAMINS
  5. XYREM [Suspect]
     Active Substance: SODIUM OXYBATE
     Indication: CATAPLEXY
     Dosage: 2.5 G, BID
     Route: 048
     Dates: start: 201608, end: 201608
  6. NASONEX [Concomitant]
     Active Substance: MOMETASONE FUROATE
  7. XYREM [Suspect]
     Active Substance: SODIUM OXYBATE
     Dosage: 3 G, BID
     Route: 048
     Dates: start: 201608
  8. MIDODRINE HCL [Concomitant]
     Active Substance: MIDODRINE HYDROCHLORIDE
  9. NUVIGIL [Concomitant]
     Active Substance: ARMODAFINIL
  10. ZYRTEC [Concomitant]
     Active Substance: CETIRIZINE HYDROCHLORIDE

REACTIONS (1)
  - Urinary tract infection [Unknown]
